FAERS Safety Report 5744934-4 (Version None)
Quarter: 2008Q2

REPORT INFORMATION
  Report Type: 
  Country: None (occurrence: None)
  Receive Date: 20080521
  Receipt Date: 20080514
  Transmission Date: 20081010
  Serious: Yes (Disabling, Other)
  Sender: FDA-Public Use
  Company Number: FR-SP-E2007-09015

PATIENT
  Age: 38 Year
  Sex: Male
  Weight: 52 kg

DRUGS (2)
  1. TUBERTEST [Suspect]
     Indication: TUBERCULIN TEST
     Dosage: 0.1 ML
     Route: 023
     Dates: start: 20071117
  2. TUBERTEST [Suspect]
     Dosage: 0.1 ML
     Route: 058
     Dates: start: 20071117

REACTIONS (10)
  - DEAFNESS [None]
  - INCORRECT ROUTE OF DRUG ADMINISTRATION [None]
  - LOCAL REACTION [None]
  - MOBILITY DECREASED [None]
  - MONOPARESIS [None]
  - MULTIPLE SCLEROSIS RELAPSE [None]
  - OVERDOSE [None]
  - PARAPLEGIA [None]
  - TUBERCULIN TEST POSITIVE [None]
  - VISUAL ACUITY REDUCED [None]
